FAERS Safety Report 14720498 (Version 1)
Quarter: 2018Q1

REPORT INFORMATION
  Report Type: Spontaneous
  Country: US (occurrence: US)
  Receive Date: 20180330
  Receipt Date: 20180330
  Transmission Date: 20180509
  Serious: No
  Sender: FDA-Public Use
  Company Number: None

PATIENT
  Age: 60 Year
  Sex: Male

DRUGS (1)
  1. SUTENT [Suspect]
     Active Substance: SUNITINIB MALATE
     Indication: PRODUCT USED FOR UNKNOWN INDICATION
     Dosage: ?          OTHER DOSE:CAPSULE;OTHER FREQUENCY:DAILY FOR 14 DAYS ;?
     Route: 048
     Dates: start: 20180125

REACTIONS (3)
  - Pain [None]
  - Fatigue [None]
  - Rhinorrhoea [None]

NARRATIVE: CASE EVENT DATE: 20180327
